FAERS Safety Report 9634345 (Version 1)
Quarter: 2013Q4

REPORT INFORMATION
  Report Type: Spontaneous
  Country: FR (occurrence: FR)
  Receive Date: 20131021
  Receipt Date: 20131021
  Transmission Date: 20140711
  Serious: Yes (Hospitalization)
  Sender: FDA-Public Use
  Company Number: FR-JNJFOC-20131010835

PATIENT
  Age: 99 Year
  Sex: Female

DRUGS (10)
  1. IXPRIM [Suspect]
     Indication: LIGAMENT SPRAIN
     Route: 048
     Dates: start: 20130725, end: 20130729
  2. PRETERAX [Suspect]
     Indication: PRODUCT USED FOR UNKNOWN INDICATION
     Route: 048
     Dates: start: 2006, end: 20130728
  3. LANZOR [Suspect]
     Indication: LIGAMENT SPRAIN
     Route: 048
     Dates: start: 20130725, end: 20130729
  4. CORDARONE [Concomitant]
     Indication: PRODUCT USED FOR UNKNOWN INDICATION
     Route: 048
     Dates: start: 2006
  5. AMLOR [Concomitant]
     Indication: PRODUCT USED FOR UNKNOWN INDICATION
     Route: 048
     Dates: start: 2007
  6. SELOKEN (METOPROLOL TARTRATE) [Concomitant]
     Indication: PRODUCT USED FOR UNKNOWN INDICATION
     Route: 048
     Dates: start: 2006
  7. HEMIGOXINE NATIVELLE [Concomitant]
     Indication: PRODUCT USED FOR UNKNOWN INDICATION
     Route: 048
     Dates: start: 2006, end: 20130730
  8. LEVOTHYROX [Concomitant]
     Indication: PRODUCT USED FOR UNKNOWN INDICATION
     Route: 048
     Dates: start: 2006
  9. PREVISCAN [Concomitant]
     Indication: PRODUCT USED FOR UNKNOWN INDICATION
     Route: 048
     Dates: start: 2006, end: 20130729
  10. BI-PROFENID [Concomitant]
     Indication: LIGAMENT SPRAIN
     Route: 048
     Dates: start: 20130725, end: 20130729

REACTIONS (2)
  - Hyponatraemia [Recovered/Resolved]
  - Confusional state [Recovered/Resolved]
